FAERS Safety Report 7074577-4 (Version None)
Quarter: 2010Q4

REPORT INFORMATION
  Report Type: 
  Country: None (occurrence: None)
  Receive Date: 20101029
  Receipt Date: 20100219
  Transmission Date: 20110411
  Serious: No
  Sender: FDA-Public Use
  Company Number: A0841902A

PATIENT
  Age: 41 Year
  Sex: Male
  Weight: 84.1 kg

DRUGS (6)
  1. SUMATRIPTAN SUCCINATE [Suspect]
     Indication: MIGRAINE
     Dosage: 5MG AS REQUIRED
     Route: 045
  2. PRAVASTATIN [Concomitant]
     Dosage: 20MG PER DAY
     Route: 048
     Dates: start: 20091130
  3. ALPRAZOLAM [Concomitant]
     Indication: ANXIETY
     Dosage: .25MG AS REQUIRED
     Dates: start: 20070101
  4. HYDROCODONE [Concomitant]
     Indication: HEADACHE
     Dates: start: 20070101
  5. PROPECIA [Concomitant]
     Dosage: 1MG PER DAY
     Route: 048
     Dates: start: 20080101
  6. FUROSEMIDE [Concomitant]
     Indication: DIURETIC THERAPY
     Dosage: 40MG PER DAY
     Route: 048
     Dates: start: 20070101

REACTIONS (4)
  - DRUG INEFFECTIVE [None]
  - NAUSEA [None]
  - PARAESTHESIA [None]
  - VOMITING [None]
